FAERS Safety Report 20830800 (Version 2)
Quarter: 2022Q2

REPORT INFORMATION
  Report Type: Report from Study
  Country: DE (occurrence: DE)
  Receive Date: 20220515
  Receipt Date: 20220525
  Transmission Date: 20220720
  Serious: Yes (Other)
  Sender: FDA-Public Use
  Company Number: DE-ROCHE-2154800

PATIENT
  Age: 35 Year
  Sex: Female

DRUGS (15)
  1. METHYLPREDNISOLONE [Suspect]
     Active Substance: METHYLPREDNISOLONE
     Indication: Product used for unknown indication
     Dosage: UNIT DOSE 100 MG, [METHYLPREDNISOLONE]
     Route: 042
     Dates: start: 20180702
  2. COMIRNATY [Suspect]
     Active Substance: TOZINAMERAN
     Indication: COVID-19 prophylaxis
     Route: 065
     Dates: start: 20211201
  3. COMIRNATY [Suspect]
     Active Substance: TOZINAMERAN
     Dosage: SECOND DOSE
     Route: 065
     Dates: start: 20210602
  4. COMIRNATY [Suspect]
     Active Substance: TOZINAMERAN
     Dosage: FIRST DOSE
     Route: 065
     Dates: start: 20210422
  5. OCREVUS [Suspect]
     Active Substance: OCRELIZUMAB
     Indication: Relapsing-remitting multiple sclerosis
     Dosage: UNIT DOSE 300 MG,DURATION 1 DAYS
     Route: 042
     Dates: start: 20180702, end: 20180702
  6. OCREVUS [Suspect]
     Active Substance: OCRELIZUMAB
     Dosage: UNIT DOSE 300 MG
     Route: 042
     Dates: start: 20180716
  7. OCREVUS [Suspect]
     Active Substance: OCRELIZUMAB
     Dosage: UNIT DOSE 600 MG,FREQUENCY TIME 175 DAYS
     Route: 042
     Dates: start: 20190114
  8. OCREVUS [Suspect]
     Active Substance: OCRELIZUMAB
     Dosage: 6TH MAINTENANCE DOSE,UNIT DOSE 600 MG,FREQUENCY TIME 232 DAYS
     Route: 042
     Dates: start: 20210729
  9. OCREVUS [Suspect]
     Active Substance: OCRELIZUMAB
     Route: 065
  10. CORTISONE [Suspect]
     Active Substance: CORTISONE
     Indication: Product used for unknown indication
     Route: 065
  11. NABIXIMOLS [Concomitant]
     Active Substance: NABIXIMOLS
  12. SODIUM CHLORIDE [Concomitant]
     Active Substance: SODIUM CHLORIDE
     Route: 042
     Dates: start: 20180702
  13. DIMETHINDENE [Concomitant]
     Active Substance: DIMETHINDENE
     Dosage: UNIT DOSE 4 MG
     Route: 042
     Dates: start: 20180702
  14. ACETAMINOPHEN [Concomitant]
     Active Substance: ACETAMINOPHEN
     Dosage: UNIT DOSE 1000 MG
     Route: 048
     Dates: start: 20180702
  15. DESLORATADINE [Concomitant]
     Active Substance: DESLORATADINE
     Dosage: UNIT DOSE 5MG
     Route: 048
     Dates: start: 20180702

REACTIONS (21)
  - Multiple sclerosis relapse [Recovered/Resolved]
  - Nasopharyngitis [Recovered/Resolved]
  - Influenza [Recovered/Resolved]
  - Skin hypertrophy [Not Recovered/Not Resolved]
  - Hypotension [Recovered/Resolved]
  - Nausea [Recovered/Resolved]
  - Fluid retention [Not Recovered/Not Resolved]
  - Depressed mood [Recovered/Resolved]
  - Blood uric acid increased [Recovered/Resolved]
  - Chills [Recovered/Resolved]
  - Weight increased [Recovered/Resolved]
  - Fatigue [Recovered/Resolved]
  - Therapeutic product effect decreased [Recovered/Resolved]
  - SARS-CoV-2 antibody test negative [Not Recovered/Not Resolved]
  - Headache [Recovered/Resolved]
  - Hyperhidrosis [Recovered/Resolved]
  - Alopecia [Recovered/Resolved]
  - Renal function test abnormal [Recovered/Resolved]
  - Cardiovascular disorder [Recovered/Resolved]
  - COVID-19 [Recovered/Resolved]
  - Oropharyngeal pain [Recovered/Resolved]

NARRATIVE: CASE EVENT DATE: 20180702
